FAERS Safety Report 13642225 (Version 1)
Quarter: 2017Q2

REPORT INFORMATION
  Report Type: Spontaneous
  Country: US (occurrence: US)
  Receive Date: 20170610
  Receipt Date: 20170610
  Transmission Date: 20170830
  Serious: Yes (Hospitalization)
  Sender: FDA-Public Use
  Company Number: None

PATIENT
  Age: 15 Year
  Sex: Male
  Weight: 78.5 kg

DRUGS (6)
  1. MERCAPTOPURINE. [Suspect]
     Active Substance: MERCAPTOPURINE
     Dates: end: 20170530
  2. PREDNISONE. [Suspect]
     Active Substance: PREDNISONE
     Dates: end: 20170515
  3. CYTARABINE. [Suspect]
     Active Substance: CYTARABINE
     Dates: end: 20170511
  4. METHOTREXATE. [Suspect]
     Active Substance: METHOTREXATE
     Dates: end: 20170511
  5. HYDROCORTISONE. [Suspect]
     Active Substance: HYDROCORTISONE
     Dates: end: 20170511
  6. VINCRISTINE SULFATE. [Suspect]
     Active Substance: VINCRISTINE SULFATE
     Dates: end: 20170511

REACTIONS (7)
  - Headache [None]
  - Sinusitis [None]
  - Bradycardia [None]
  - Diplopia [None]
  - Blood culture positive [None]
  - Cryptococcosis [None]
  - Hypertension [None]

NARRATIVE: CASE EVENT DATE: 20170527
